FAERS Safety Report 8106678-3 (Version None)
Quarter: 2012Q1

REPORT INFORMATION
  Report Type: 
  Country: None (occurrence: None)
  Receive Date: 20120202
  Receipt Date: 20120131
  Transmission Date: 20120608
  Serious: Yes (Hospitalization)
  Sender: FDA-Public Use
  Company Number: GB-EISAI INC-E2090-01969-SPO-GB

PATIENT
  Age: 44 Year
  Sex: Female
  Weight: 63.5 kg

DRUGS (3)
  1. PHENYTOIN [Concomitant]
  2. ZONEGRAN [Suspect]
     Dosage: UNKNOWN
     Route: 048
  3. PREGABALIN [Concomitant]

REACTIONS (4)
  - RASH [None]
  - NAUSEA [None]
  - VOMITING [None]
  - DEHYDRATION [None]
